FAERS Safety Report 13043879 (Version 1)
Quarter: 2016Q4

REPORT INFORMATION
  Report Type: Spontaneous
  Country: US (occurrence: US)
  Receive Date: 20161220
  Receipt Date: 20161220
  Transmission Date: 20170207
  Serious: Yes (Other)
  Sender: FDA-Public Use
  Company Number: US-ROCHE-1011442

PATIENT
  Sex: Male

DRUGS (1)
  1. ZELBORAF [Suspect]
     Active Substance: VEMURAFENIB
     Indication: PRODUCT USED FOR UNKNOWN INDICATION
     Route: 065

REACTIONS (12)
  - Hypoaesthesia [Unknown]
  - Chills [Unknown]
  - Urine odour abnormal [Unknown]
  - Vision blurred [Unknown]
  - Rash [Unknown]
  - Skin odour abnormal [Unknown]
  - Squamous cell carcinoma [Unknown]
  - Pyrexia [Unknown]
  - Ageusia [Unknown]
  - Facial paralysis [Unknown]
  - Heart rate irregular [Unknown]
  - Headache [Unknown]
